FAERS Safety Report 4514799-7 (Version None)
Quarter: 2004Q4

REPORT INFORMATION
  Report Type: 
  Country: None (occurrence: None)
  Receive Date: 20041129
  Receipt Date: 20041129
  Transmission Date: 20050328
  Serious: Yes (Other)
  Sender: FDA-Public Use
  Company Number: None

PATIENT
  Age: 55 Year
  Sex: Female
  Weight: 60.782 kg

DRUGS (8)
  1. GABAPENTIN BY TEVA [Suspect]
     Indication: BACK PAIN
     Dosage: 400 MG QID PO/ 2 OCCASIONS
     Route: 048
     Dates: start: 20041120
  2. GABAPENTIN BY TEVA [Suspect]
     Indication: CEREBROVASCULAR ACCIDENT
     Dosage: 400 MG QID PO/ 2 OCCASIONS
     Route: 048
     Dates: start: 20041120
  3. EFFEXOR [Concomitant]
  4. ZANAFLEX [Concomitant]
  5. DARVOCET-N 100 [Concomitant]
  6. PREVACID [Concomitant]
  7. SONATA [Concomitant]
  8. CLONIDINE [Concomitant]

REACTIONS (8)
  - ABDOMINAL PAIN [None]
  - ATAXIA [None]
  - CEREBROVASCULAR ACCIDENT [None]
  - CHEST PAIN [None]
  - PALPITATIONS [None]
  - PHARMACEUTICAL PRODUCT COMPLAINT [None]
  - SPEECH DISORDER [None]
  - VISUAL DISTURBANCE [None]
